FAERS Safety Report 10690470 (Version 1)
Quarter: 2015Q1

REPORT INFORMATION
  Report Type: Spontaneous
  Country: US (occurrence: None)
  Receive Date: 20150102
  Receipt Date: 20150102
  Transmission Date: 20150720
  Serious: No
  Sender: FDA-Public Use
  Company Number: None

PATIENT
  Age: 38 Year
  Sex: Female
  Weight: 68.04 kg

DRUGS (1)
  1. MIRENA [Suspect]
     Active Substance: LEVONORGESTREL
     Indication: MENORRHAGIA
     Dosage: 24HR, ONCE DAILY, VAGINAL
     Route: 067
     Dates: start: 20140908, end: 20141205

REACTIONS (5)
  - Peripheral swelling [None]
  - Arthralgia [None]
  - Gait disturbance [None]
  - Joint swelling [None]
  - Pain in extremity [None]

NARRATIVE: CASE EVENT DATE: 20140908
